FAERS Safety Report 16802762 (Version 2)
Quarter: 2022Q1

REPORT INFORMATION
  Report Type: Spontaneous
  Country: CA (occurrence: CA)
  Receive Date: 20190912
  Receipt Date: 20220210
  Transmission Date: 20220424
  Serious: Yes (Hospitalization, Other)
  Sender: FDA-Public Use
  Company Number: CA-AUROBINDO-AUR-APL-2019-058990

PATIENT
  Age: 55 Year
  Sex: Male

DRUGS (10)
  1. AMLODIPINE [Suspect]
     Active Substance: AMLODIPINE BESYLATE
     Indication: Hypertension
     Dosage: 1.0 DOSAGE FORM, DAILY
     Route: 048
  2. MONTELUKAST [Suspect]
     Active Substance: MONTELUKAST SODIUM
     Indication: Product used for unknown indication
     Dosage: 1.0 DOSAGE FORM, DAILY
     Route: 065
  3. OMALIZUMAB [Suspect]
     Active Substance: OMALIZUMAB
     Indication: Asthma
     Dosage: 375.0 MILLIGRAM, 1 EVERY 2 WEEKS
     Route: 058
  4. OMALIZUMAB [Suspect]
     Active Substance: OMALIZUMAB
     Dosage: 375.0 MILLIGRAM, 1 EVERY 2 WEEKS
     Route: 058
  5. OMALIZUMAB [Suspect]
     Active Substance: OMALIZUMAB
     Dosage: 375.0 MILLIGRAM, 1 EVERY 2 WEEKS
     Route: 058
  6. OMALIZUMAB [Suspect]
     Active Substance: OMALIZUMAB
     Dosage: 375.0 MILLIGRAM, 1 EVERY 2 WEEKS
     Route: 058
  7. OMALIZUMAB [Suspect]
     Active Substance: OMALIZUMAB
     Indication: Asthma
     Dosage: 375.0 MILLIGRAM, 1 EVERY 2 WEEK
     Route: 058
  8. XOLAIR [Suspect]
     Active Substance: OMALIZUMAB
     Indication: Asthma
     Dosage: 375 MILLIGRAM, 1 EVERY 2 WEEKS
     Route: 058
  9. SYMBICORT [Concomitant]
     Active Substance: BUDESONIDE\FORMOTEROL FUMARATE DIHYDRATE
     Indication: Product used for unknown indication
     Dosage: 2.0 DOSAGE FORM, TWO TIMES A DAY
     Route: 065
  10. VENTOLIN [Concomitant]
     Active Substance: ALBUTEROL SULFATE
     Indication: Product used for unknown indication
     Dosage: 2.0 DOSAGE FORM
     Route: 065

REACTIONS (13)
  - Blood pressure increased [Recovering/Resolving]
  - Body temperature decreased [Recovering/Resolving]
  - Discomfort [Not Recovered/Not Resolved]
  - Dyspnoea [Recovering/Resolving]
  - Eye discharge [Not Recovered/Not Resolved]
  - Malaise [Recovering/Resolving]
  - Pneumonia [Not Recovered/Not Resolved]
  - Pruritus [Not Recovered/Not Resolved]
  - Weight decreased [Not Recovered/Not Resolved]
  - Tooth abscess [Not Recovered/Not Resolved]
  - Asthma [Recovering/Resolving]
  - Blood pressure systolic increased [Recovering/Resolving]
  - Hypothermia [Recovering/Resolving]
